FAERS Safety Report 25676924 (Version 2)
Quarter: 2025Q3

REPORT INFORMATION
  Report Type: Report from Study
  Country: US (occurrence: US)
  Receive Date: 20250813
  Receipt Date: 20250820
  Transmission Date: 20251020
  Serious: Yes (Hospitalization)
  Sender: TAKEDA
  Company Number: US-TAKEDA-2025TUS071033

PATIENT
  Sex: Female

DRUGS (1)
  1. MARIBAVIR [Suspect]
     Active Substance: MARIBAVIR
     Indication: Cytomegalovirus infection
     Dosage: 400 MILLIGRAM, BID
     Dates: start: 20250319, end: 2025

REACTIONS (5)
  - Blood iron decreased [Unknown]
  - Oligomenorrhoea [Unknown]
  - Uterine polyp [Unknown]
  - Uterine leiomyoma [Unknown]
  - Anaemia [Not Recovered/Not Resolved]
